FAERS Safety Report 15778920 (Version 2)
Quarter: 2019Q2

REPORT INFORMATION
  Report Type: Spontaneous
  Country: IE (occurrence: IE)
  Receive Date: 20190101
  Receipt Date: 20190425
  Transmission Date: 20190711
  Serious: Yes (Death, Hospitalization, Other)
  Sender: FDA-Public Use
  Company Number: IE-ACCORD-098892

PATIENT
  Age: 31 Year
  Sex: Female

DRUGS (3)
  1. IBRANCE [Suspect]
     Active Substance: PALBOCICLIB
     Indication: PRODUCT USED FOR UNKNOWN INDICATION
     Dosage: 100 MG, UNK
     Dates: start: 201701, end: 201706
  2. PALBOCICLIB [Suspect]
     Active Substance: PALBOCICLIB
     Indication: BREAST CANCER
     Dosage: UNK
  3. LETROZOLE. [Suspect]
     Active Substance: LETROZOLE
     Indication: BREAST CANCER
     Dates: start: 201701, end: 201706

REACTIONS (10)
  - Thrombocytopenia [Unknown]
  - Carbohydrate antigen 15-3 increased [Unknown]
  - Fatigue [Unknown]
  - Febrile neutropenia [Unknown]
  - Sepsis [Unknown]
  - Nausea [Unknown]
  - Pyrexia [Unknown]
  - Neutropenia [Unknown]
  - Neoplasm progression [Fatal]
  - Headache [Unknown]

NARRATIVE: CASE EVENT DATE: 2017
